FAERS Safety Report 10526333 (Version 2)
Quarter: 2014Q4

REPORT INFORMATION
  Report Type: Report from Study
  Country: BR (occurrence: BR)
  Receive Date: 20141019
  Receipt Date: 20141019
  Transmission Date: 20150528
  Serious: Yes (Life-Threatening, Other)
  Sender: FDA-Public Use
  Company Number: PHHY2014BR040761

PATIENT
  Age: 53 Year
  Sex: Female
  Weight: 75 kg

DRUGS (10)
  1. GALVUS MET [Suspect]
     Active Substance: METFORMIN HYDROCHLORIDE\VILDAGLIPTIN
     Dosage: 2 DF DAILY (CUT IN 4 PIECES)
     Route: 065
  2. SIMVASTATIN. [Concomitant]
     Active Substance: SIMVASTATIN
     Dosage: 1 DF, QD (AT NIGHT)
     Route: 065
  3. GALVUS MET [Suspect]
     Active Substance: METFORMIN HYDROCHLORIDE\VILDAGLIPTIN
     Indication: DIABETES MELLITUS
     Dosage: 2 DF, QD (IN THE MORNING)
     Route: 065
  4. OMEPRAZOLE. [Suspect]
     Active Substance: OMEPRAZOLE
     Indication: GASTRITIS
     Dosage: 1 DF, DAILY
     Route: 065
  5. ROSULIB [Suspect]
     Active Substance: ROSUVASTATIN
     Indication: BLOOD CHOLESTEROL INCREASED
     Dosage: 1 DF, DAILY
     Route: 065
  6. DIAMICRON [Concomitant]
     Active Substance: GLICLAZIDE
     Indication: DIABETES MELLITUS
     Dosage: 1 DF, QD
     Route: 065
  7. SIMVASTATIN. [Concomitant]
     Active Substance: SIMVASTATIN
     Indication: BLOOD CHOLESTEROL INCREASED
     Dosage: 1 DF, QD (AT NIGHT)
     Route: 065
  8. AZUKON [Suspect]
     Active Substance: GLICLAZIDE
     Indication: DIABETES MELLITUS
     Dosage: 2 DF, DAILY
     Route: 065
  9. GALVUS MET [Suspect]
     Active Substance: METFORMIN HYDROCHLORIDE\VILDAGLIPTIN
     Dosage: 1 DF (850/50MG), IN THE MORNING AND 1 DF AT NIGHT
     Route: 065
  10. GLIFAGE [Suspect]
     Active Substance: METFORMIN HYDROCHLORIDE
     Indication: DIABETES MELLITUS
     Dosage: 3 DF, DAILY
     Route: 065

REACTIONS (12)
  - Depression [Recovering/Resolving]
  - Rhinitis [Recovering/Resolving]
  - Blood glucose increased [Recovering/Resolving]
  - Emotional disorder [Unknown]
  - Pruritus [Recovering/Resolving]
  - Wrong technique in drug usage process [Recovering/Resolving]
  - Heart rate increased [Recovering/Resolving]
  - Sinus headache [Recovering/Resolving]
  - Pain in extremity [Recovering/Resolving]
  - Sinusitis [Recovering/Resolving]
  - Choking [Recovering/Resolving]
  - Blood glucose fluctuation [Recovering/Resolving]

NARRATIVE: CASE EVENT DATE: 20140325
